FAERS Safety Report 5048792-5 (Version None)
Quarter: 2006Q3

REPORT INFORMATION
  Report Type: 
  Country: None (occurrence: None)
  Receive Date: 20060706
  Receipt Date: 20060623
  Transmission Date: 20061208
  Serious: Yes (Hospitalization)
  Sender: FDA-Public Use
  Company Number: RENA-11808

PATIENT
  Age: 71 Year
  Sex: Male

DRUGS (2)
  1. RENAGEL [Suspect]
     Indication: HYPERPHOSPHATAEMIA
     Dosage: 2 G TID PO
     Route: 048
     Dates: start: 20040729, end: 20050404
  2. RENAGEL [Suspect]
     Indication: HYPERPHOSPHATAEMIA
     Dosage: 2 G TID PO
     Route: 048
     Dates: start: 20031222, end: 20040606

REACTIONS (1)
  - INTESTINAL OBSTRUCTION [None]
